FAERS Safety Report 9601253 (Version 1)
Quarter: 2013Q4

REPORT INFORMATION
  Report Type: Spontaneous
  Country: IN (occurrence: IN)
  Receive Date: 20131006
  Receipt Date: 20131006
  Transmission Date: 20140711
  Serious: Yes (Hospitalization)
  Sender: FDA-Public Use
  Company Number: IN-MYLANLABS-2013S1021599

PATIENT
  Age: 22 Year
  Sex: Male
  Weight: 64 kg

DRUGS (1)
  1. MONTELUKAST [Suspect]
     Indication: RHINITIS ALLERGIC
     Dosage: 10MG DAILY AFTER FOOD
     Route: 048

REACTIONS (4)
  - Pancreatitis acute [Recovered/Resolved]
  - Hypertriglyceridaemia [Recovered/Resolved]
  - Hypercholesterolaemia [Recovered/Resolved]
  - Weight increased [Recovering/Resolving]
